FAERS Safety Report 6122111-5 (Version None)
Quarter: 2009Q1

REPORT INFORMATION
  Report Type: 
  Country: None (occurrence: None)
  Receive Date: 20090316
  Receipt Date: 20090316
  Transmission Date: 20090719
  Serious: Yes (Other)
  Sender: FDA-Public Use
  Company Number: None

PATIENT
  Age: 18 Year
  Sex: Female
  Weight: 70.3075 kg

DRUGS (1)
  1. SINGULAIR [Suspect]
     Indication: ASTHMA
     Dosage: 10MG ONE TIME DAILY PO
     Route: 048
     Dates: start: 20090310, end: 20090313

REACTIONS (6)
  - COUGH [None]
  - EPISTAXIS [None]
  - LOSS OF CONSCIOUSNESS [None]
  - MIGRAINE [None]
  - OROPHARYNGEAL PAIN [None]
  - SUDDEN HEARING LOSS [None]
